FAERS Safety Report 18179154 (Version 1)
Quarter: 2020Q3

REPORT INFORMATION
  Report Type: Report from Study
  Country: KR (occurrence: KR)
  Receive Date: 20200821
  Receipt Date: 20200821
  Transmission Date: 20201103
  Serious: Yes (Other)
  Sender: FDA-Public Use
  Company Number: KR-SUN PHARMACEUTICAL INDUSTRIES LTD-2020R1-257722

PATIENT
  Age: 37 Year
  Sex: Female

DRUGS (1)
  1. METHOTREXATE. [Suspect]
     Active Substance: METHOTREXATE
     Indication: ANAPLASTIC LARGE-CELL LYMPHOMA
     Dosage: 15 MILLIGRAM, WEEKLY (CUMULATIVE DOSE 75 MG)
     Route: 048

REACTIONS (4)
  - Diarrhoea [Unknown]
  - Disease recurrence [Unknown]
  - Dizziness [Unknown]
  - Nausea [Unknown]
